FAERS Safety Report 19665794 (Version 1)
Quarter: 2021Q3

REPORT INFORMATION
  Report Type: Spontaneous
  Country: US (occurrence: US)
  Receive Date: 20210806
  Receipt Date: 20210806
  Transmission Date: 20211014
  Serious: No
  Sender: FDA-Public Use
  Company Number: US-009507513-2107USA002100

PATIENT
  Sex: Male

DRUGS (1)
  1. PROVENTIL [Suspect]
     Active Substance: ALBUTEROL
     Dosage: 2 INHALATION, TWICE DAILY
     Route: 055
     Dates: start: 20210630

REACTIONS (4)
  - Poor quality device used [Unknown]
  - Product delivery mechanism issue [Unknown]
  - No adverse event [Unknown]
  - Device material issue [Unknown]

NARRATIVE: CASE EVENT DATE: 20210630
